FAERS Safety Report 4929091-6 (Version None)
Quarter: 2006Q1

REPORT INFORMATION
  Report Type: 
  Country: None (occurrence: None)
  Receive Date: 20060301
  Receipt Date: 20050621
  Transmission Date: 20060701
  Serious: Yes (Other)
  Sender: FDA-Public Use
  Company Number: US-MERCK-0506USA03187

PATIENT
  Age: 84 Year
  Sex: Female

DRUGS (1)
  1. VIOXX [Suspect]
     Route: 048

REACTIONS (4)
  - DIARRHOEA [None]
  - FALL [None]
  - ISCHAEMIC STROKE [None]
  - STOMACH DISCOMFORT [None]
